FAERS Safety Report 21157375 (Version 1)
Quarter: 2022Q3

REPORT INFORMATION
  Report Type: Spontaneous
  Country: GB (occurrence: GB)
  Receive Date: 20220801
  Receipt Date: 20220801
  Transmission Date: 20221026
  Serious: Yes (Other)
  Sender: FDA-Public Use
  Company Number: GB-ARBOR PHARMACEUTICALS, LLC-GB-2022ARB001647

PATIENT

DRUGS (4)
  1. TRIPTODUR [Suspect]
     Active Substance: TRIPTORELIN
     Indication: Prostate cancer
     Dosage: STRENGTH:NOT REPORTED
     Route: 065
  2. TRIPTODUR [Suspect]
     Active Substance: TRIPTORELIN
  3. TRIPTODUR [Suspect]
     Active Substance: TRIPTORELIN
  4. ENZALUTAMIDE [Suspect]
     Active Substance: ENZALUTAMIDE
     Indication: Prostate cancer
     Dosage: UNK

REACTIONS (3)
  - Erectile dysfunction [Unknown]
  - Loss of libido [Unknown]
  - Adverse event [Unknown]
